FAERS Safety Report 5829567-3 (Version None)
Quarter: 2008Q3

REPORT INFORMATION
  Report Type: 
  Country: None (occurrence: None)
  Receive Date: 20080729
  Receipt Date: 20080723
  Transmission Date: 20090109
  Serious: Yes (Hospitalization, Other)
  Sender: FDA-Public Use
  Company Number: 2008SP013135

PATIENT
  Age: 57 Year
  Sex: Female

DRUGS (9)
  1. PEG-INTRON [Suspect]
     Indication: HEPATITIS C
     Dosage: SC, 150 MCG, QW; SC
     Route: 058
     Dates: start: 20071126, end: 20080603
  2. PEG-INTRON [Suspect]
     Indication: HEPATITIS C
     Dosage: SC, 150 MCG, QW; SC
     Route: 058
     Dates: start: 20080701
  3. RIBAVIRIN [Suspect]
     Indication: HEPATITIS C
     Dosage: PO; 800 MG; QD; PO
     Route: 048
     Dates: start: 20071126, end: 20080603
  4. PROVIGIL [Concomitant]
  5. DOXEPIN HCL [Concomitant]
  6. NADOLOL [Concomitant]
  7. MIRAPEX [Concomitant]
  8. PROZAC [Concomitant]
  9. VALIUM [Concomitant]

REACTIONS (21)
  - ACUTE SINUSITIS [None]
  - ANAEMIA [None]
  - ASTHENIA [None]
  - CANDIDIASIS [None]
  - CHRONIC OBSTRUCTIVE PULMONARY DISEASE [None]
  - DELIRIUM [None]
  - ENCEPHALITIS VIRAL [None]
  - FALL [None]
  - FULL BLOOD COUNT DECREASED [None]
  - GASTRITIS [None]
  - HAIR GROWTH ABNORMAL [None]
  - HALLUCINATION [None]
  - IMMUNE SYSTEM DISORDER [None]
  - INFLUENZA LIKE ILLNESS [None]
  - MALAISE [None]
  - OESOPHAGITIS [None]
  - ORAL FUNGAL INFECTION [None]
  - PNEUMONIA [None]
  - STAPHYLOCOCCAL INFECTION [None]
  - TREMOR [None]
  - WEIGHT DECREASED [None]
